FAERS Safety Report 13861142 (Version 2)
Quarter: 2017Q4

REPORT INFORMATION
  Report Type: Spontaneous
  Country: US (occurrence: US)
  Receive Date: 20170811
  Receipt Date: 20171006
  Transmission Date: 20180320
  Serious: Yes (Other)
  Sender: FDA-Public Use
  Company Number: US-SA-2017SA142918

PATIENT
  Age: 57 Year
  Sex: Male
  Weight: 64 kg

DRUGS (21)
  1. DOCUSATE SODIUM. [Concomitant]
     Active Substance: DOCUSATE SODIUM
     Dosage: STRENGTH :100 MG
     Route: 048
  2. TACROLIMUS. [Concomitant]
     Active Substance: TACROLIMUS
     Dosage: STRENGTH :5 MG
     Route: 048
  3. NEPHRO-VITE RX [Concomitant]
     Route: 048
  4. ZOFRAN [Concomitant]
     Active Substance: ONDANSETRON HYDROCHLORIDE
     Indication: VOMITING
     Dosage: EVERY 6 HOUR,PRN
     Route: 042
     Dates: start: 20170504
  5. SIMETICONE/MAGNESIUM HYDROXIDE/ALUMINIUM HYDROXIDE GEL, DRIED [Concomitant]
     Indication: DYSPEPSIA
     Dosage: EVERY 6 HOURS, PRN
     Route: 048
  6. COREG [Concomitant]
     Active Substance: CARVEDILOL
     Dosage: STRENGTH :12.5MG
     Route: 048
  7. DEXTROSE. [Concomitant]
     Active Substance: DEXTROSE
     Indication: BLOOD GLUCOSE DECREASED
     Dosage: AS DIRECTED,PRN,IV PUSH
     Dates: start: 20170503
  8. HYDROCORTISONE. [Concomitant]
     Active Substance: HYDROCORTISONE
     Dosage: STRENGTH :25 MG , 1 SUPPOSITORY
     Route: 054
  9. MYCOPHENOLIC ACID. [Concomitant]
     Active Substance: MYCOPHENOLIC ACID
     Dosage: STRENGTH :180 MG
     Route: 048
  10. APRESOLINE HYDROCHLORIDE [Concomitant]
     Active Substance: HYDRALAZINE HYDROCHLORIDE
     Route: 048
     Dates: start: 20170505
  11. PROTONIX [Concomitant]
     Active Substance: PANTOPRAZOLE SODIUM
     Dosage: STRENGTH :40 MG
     Route: 048
  12. THYMOGLOBULIN [Suspect]
     Active Substance: LAPINE T-LYMPHOCYTE IMMUNE GLOBULIN
     Indication: PROPHYLAXIS AGAINST TRANSPLANT REJECTION
     Route: 042
     Dates: start: 20170503, end: 20170505
  13. CLONIDINE. [Concomitant]
     Active Substance: CLONIDINE
     Dosage: EVERY 4 HOUR,PRN
     Route: 048
     Dates: start: 20170504
  14. THYMOGLOBULIN [Suspect]
     Active Substance: LAPINE T-LYMPHOCYTE IMMUNE GLOBULIN
     Indication: PROPHYLAXIS AGAINST TRANSPLANT REJECTION
     Route: 042
     Dates: start: 20170503, end: 20170505
  15. NORVASC [Concomitant]
     Active Substance: AMLODIPINE BESYLATE
     Dosage: STRENGTH:10 MG
     Route: 048
  16. ZOFRAN [Concomitant]
     Active Substance: ONDANSETRON HYDROCHLORIDE
     Indication: NAUSEA
     Dosage: EVERY 6 HOUR,PRN
     Route: 042
     Dates: start: 20170504
  17. PREDNISONE. [Concomitant]
     Active Substance: PREDNISONE
     Dosage: STRENGTH :10 MG
     Route: 048
  18. TACROLIMUS. [Concomitant]
     Active Substance: TACROLIMUS
     Dosage: STRENGTH :1MG
     Route: 048
  19. THYMOGLOBULIN [Suspect]
     Active Substance: LAPINE T-LYMPHOCYTE IMMUNE GLOBULIN
     Indication: PROPHYLAXIS AGAINST TRANSPLANT REJECTION
     Route: 042
     Dates: start: 20170503, end: 20170505
  20. BISACODYL. [Concomitant]
     Active Substance: BISACODYL
     Indication: CONSTIPATION
     Dosage: PRN
     Route: 054
  21. VALGANCICLOVIR. [Concomitant]
     Active Substance: VALGANCICLOVIR
     Dosage: MONDAY , WEDNESDY,FRIDAY.?STRENGTH :450 MG
     Route: 048

REACTIONS (5)
  - Pulmonary oedema [Recovered/Resolved]
  - Respiratory tract congestion [Recovered/Resolved]
  - Dyspnoea [Recovered/Resolved]
  - Respiratory arrest [Recovered/Resolved]
  - Oxygen saturation decreased [Recovered/Resolved]

NARRATIVE: CASE EVENT DATE: 20170505
